FAERS Safety Report 4932383-8 (Version None)
Quarter: 2006Q1

REPORT INFORMATION
  Report Type: 
  Country: None (occurrence: None)
  Receive Date: 20060301
  Receipt Date: 20060216
  Transmission Date: 20060701
  Serious: Yes (Other)
  Sender: FDA-Public Use
  Company Number: GXKR2006IE01015

PATIENT
  Age: 30 Year
  Sex: Female

DRUGS (2)
  1. CEFUROXIME [Suspect]
     Indication: POST PROCEDURAL CELLULITIS
     Dosage: 250 MG, BID, ORAL
     Route: 048
  2. TRADOL                      (TRAMADOL HYDROCHLORIDE) [Concomitant]

REACTIONS (2)
  - PHARYNGEAL OEDEMA [None]
  - SWOLLEN TONGUE [None]
